FAERS Safety Report 7827393-7 (Version None)
Quarter: 2011Q4

REPORT INFORMATION
  Report Type: 
  Country: None (occurrence: None)
  Receive Date: 20111020
  Receipt Date: 20111018
  Transmission Date: 20120403
  Serious: Yes (Other)
  Sender: FDA-Public Use
  Company Number: US-ABBOTT-11P-163-0848387-00

PATIENT
  Sex: Female
  Weight: 108.96 kg

DRUGS (9)
  1. MULTI-VITAMIN [Concomitant]
     Indication: VITAMIN SUPPLEMENTATION
  2. GABAPENTINE [Concomitant]
     Indication: PRODUCT USED FOR UNKNOWN INDICATION
  3. TRAMADOL HCL [Concomitant]
     Indication: PAIN
  4. FOLIC ACID [Concomitant]
     Indication: FOLATE DEFICIENCY
  5. BENICAR [Concomitant]
     Indication: HYPERTENSION
  6. XIFAXAN [Concomitant]
     Indication: DIARRHOEA
  7. LEVOTHYROXINE SODIUM [Concomitant]
     Indication: HYPOTHYROIDISM
  8. HUMIRA [Suspect]
     Indication: ARTHRITIS
     Dates: start: 20110301, end: 20110701
  9. DETROL [Concomitant]
     Indication: MICTURITION URGENCY

REACTIONS (2)
  - HEPATIC ENZYME INCREASED [None]
  - HEPATIC CIRRHOSIS [None]
